FAERS Safety Report 9503247 (Version 2)
Quarter: 2013Q4

REPORT INFORMATION
  Report Type: Spontaneous
  Country: US (occurrence: US)
  Receive Date: 20130906
  Receipt Date: 20131203
  Transmission Date: 20140711
  Serious: Yes (Hospitalization)
  Sender: FDA-Public Use
  Company Number: US-BAYER-2013-107621

PATIENT
  Age: 45 Year
  Sex: Female
  Weight: 76.64 kg

DRUGS (4)
  1. MIRENA [Suspect]
     Indication: MENORRHAGIA
     Dosage: 20 MCG/24HR, CONT
     Route: 015
     Dates: start: 20080527, end: 20080616
  2. MIRENA [Suspect]
     Indication: MENORRHAGIA
     Dosage: 20 MG/24HR, CONT
     Route: 015
     Dates: start: 20080626, end: 20100207
  3. FLEXERIL [Concomitant]
     Indication: FIBROMYALGIA
     Dosage: UNK
     Dates: start: 1990
  4. OXYCODONE [Concomitant]
     Indication: FIBROMYALGIA
     Dosage: UNK
     Dates: start: 1990

REACTIONS (9)
  - Uterine perforation [None]
  - Injury [None]
  - Abdominal pain [None]
  - Device dislocation [None]
  - Infection [None]
  - Abdominal distension [None]
  - Vaginal odour [None]
  - Libido decreased [None]
  - Anxiety [None]
